FAERS Safety Report 19088438 (Version 1)
Quarter: 2021Q2

REPORT INFORMATION
  Report Type: Spontaneous
  Country: CN (occurrence: CN)
  Receive Date: 20210402
  Receipt Date: 20210402
  Transmission Date: 20210717
  Serious: Yes (Other)
  Sender: FDA-Public Use
  Company Number: CN-PURDUE-USA-2021-0239882

PATIENT
  Age: 71 Year
  Sex: Male
  Weight: 63 kg

DRUGS (1)
  1. OXYCODONE HYDROCHLORIDE. [Suspect]
     Active Substance: OXYCODONE HYDROCHLORIDE
     Indication: ANALGESIC THERAPY
     Dosage: 30 MG, BID
     Route: 048
     Dates: start: 20201222, end: 20201223

REACTIONS (4)
  - Tachycardia [Recovering/Resolving]
  - Hypotension [Recovering/Resolving]
  - Chest discomfort [Recovering/Resolving]
  - Vomiting [Recovering/Resolving]

NARRATIVE: CASE EVENT DATE: 20201223
